FAERS Safety Report 6315859-0 (Version None)
Quarter: 2009Q3

REPORT INFORMATION
  Report Type: 
  Country: None (occurrence: None)
  Receive Date: 20090820
  Receipt Date: 20090303
  Transmission Date: 20100115
  Serious: No
  Sender: FDA-Public Use
  Company Number: A0771337A

PATIENT

DRUGS (1)
  1. BEXXAR [Suspect]
     Dates: start: 20081211

REACTIONS (1)
  - URTICARIA [None]
